FAERS Safety Report 6755844-8 (Version None)
Quarter: 2010Q2

REPORT INFORMATION
  Report Type: 
  Country: None (occurrence: None)
  Receive Date: 20100604
  Receipt Date: 20100526
  Transmission Date: 20101027
  Serious: Yes (Disabling, Other)
  Sender: FDA-Public Use
  Company Number: DK-BAYER-200829072GPV

PATIENT
  Age: 60 Year
  Sex: Female

DRUGS (9)
  1. MAGNEVIST [Suspect]
     Indication: NUCLEAR MAGNETIC RESONANCE IMAGING
     Route: 014
     Dates: start: 20060626, end: 20060626
  2. OMNISCAN [Suspect]
     Indication: SCAN WITH CONTRAST
     Dosage: TOTAL DAILY DOSE: 15 ML
     Route: 042
     Dates: start: 20020115, end: 20020115
  3. GADOLINIUM-CONTAINING CONTRAST AGENT [Suspect]
     Indication: NUCLEAR MAGNETIC RESONANCE IMAGING
     Route: 065
     Dates: start: 20020719, end: 20020719
  4. METOCLOPRAMID [Concomitant]
  5. KININ [Concomitant]
  6. LACTULOSE [Concomitant]
  7. REMERON [Concomitant]
  8. SERENASE [Concomitant]
  9. EMPERAL [Concomitant]
     Route: 048

REACTIONS (9)
  - ABDOMINAL PAIN [None]
  - ARTHRALGIA [None]
  - MUSCLE ATROPHY [None]
  - NEPHROGENIC SYSTEMIC FIBROSIS [None]
  - OEDEMA PERIPHERAL [None]
  - ONYCHOMYCOSIS [None]
  - PAIN OF SKIN [None]
  - SKIN HYPERTROPHY [None]
  - ULCER [None]
